FAERS Safety Report 17475937 (Version 1)
Quarter: 2020Q1

REPORT INFORMATION
  Report Type: Spontaneous
  Country: IN (occurrence: IN)
  Receive Date: 20200228
  Receipt Date: 20200228
  Transmission Date: 20200409
  Serious: Yes (Other)
  Sender: FDA-Public Use
  Company Number: IN-TOLMAR, INC.-20IN020519

PATIENT
  Age: 27 Year
  Sex: Female
  Weight: 50 kg

DRUGS (1)
  1. ELIGARD [Suspect]
     Active Substance: LEUPROLIDE ACETATE
     Indication: MAYER-ROKITANSKY-KUSTER-HAUSER SYNDROME
     Dosage: UNK
     Route: 065

REACTIONS (2)
  - Pelvic pain [Recovered/Resolved]
  - Off label use [Unknown]
